FAERS Safety Report 18129111 (Version 1)
Quarter: 2020Q3

REPORT INFORMATION
  Report Type: Other
  Country: US (occurrence: US)
  Receive Date: 20200810
  Receipt Date: 20200810
  Transmission Date: 20201103
  Serious: Yes (Other)
  Sender: FDA-Public Use
  Company Number: US-AJANTA PHARMA USA INC.-2088332

PATIENT
  Age: 15 Year
  Sex: Male

DRUGS (1)
  1. OSELTAMIVIR (ANDA 212784) [Suspect]
     Active Substance: OSELTAMIVIR PHOSPHATE
     Indication: INFLUENZA
     Route: 048

REACTIONS (2)
  - Acute macular outer retinopathy [Recovering/Resolving]
  - Central vision loss [Recovering/Resolving]
